FAERS Safety Report 7659417-4 (Version None)
Quarter: 2011Q3

REPORT INFORMATION
  Report Type: 
  Country: None (occurrence: None)
  Receive Date: 20110805
  Receipt Date: 20110728
  Transmission Date: 20111222
  Serious: Yes (Other)
  Sender: FDA-Public Use
  Company Number: US-AMGEN-USASP2011038557

PATIENT
  Age: 65 Year
  Sex: Female

DRUGS (2)
  1. ENBREL [Suspect]
     Indication: RHEUMATOID ARTHRITIS
     Dosage: 50 MG, QWK
     Dates: start: 20110604
  2. METHOTREXATE [Concomitant]
     Dosage: UNK
     Dates: start: 20101101

REACTIONS (9)
  - HYPERSENSITIVITY [None]
  - SINUS DISORDER [None]
  - INJECTION SITE HAEMATOMA [None]
  - VISUAL IMPAIRMENT [None]
  - ASTHENIA [None]
  - DIZZINESS [None]
  - URINARY TRACT INFECTION [None]
  - HEADACHE [None]
  - HAEMOPTYSIS [None]
